FAERS Safety Report 9981852 (Version 1)
Quarter: 2014Q1

REPORT INFORMATION
  Report Type: Spontaneous
  Country: US (occurrence: None)
  Receive Date: 20140306
  Receipt Date: 20140306
  Transmission Date: 20141002
  Serious: Yes (Hospitalization)
  Sender: FDA-Public Use
  Company Number: None

PATIENT
  Age: 54 Year
  Sex: Male
  Weight: 76 kg

DRUGS (1)
  1. MORPHINE [Suspect]
     Route: 048
     Dates: start: 20140113, end: 20140118

REACTIONS (2)
  - Respiratory depression [None]
  - Mental status changes [None]
